FAERS Safety Report 24136067 (Version 1)
Quarter: 2024Q3

REPORT INFORMATION
  Report Type: Spontaneous
  Country: US (occurrence: US)
  Receive Date: 20240725
  Receipt Date: 20240725
  Transmission Date: 20241017
  Serious: Yes (Other)
  Sender: NOVARTIS
  Company Number: US-002147023-NVSC2024US151930

PATIENT
  Sex: Male

DRUGS (2)
  1. TAFINLAR [Suspect]
     Active Substance: DABRAFENIB MESYLATE
     Indication: Skin cancer
     Dosage: 150 MG, Q12H
     Route: 048
     Dates: start: 202403
  2. TAFINLAR [Suspect]
     Active Substance: DABRAFENIB MESYLATE
     Indication: Malignant lymphoid neoplasm

REACTIONS (4)
  - Retinitis [Unknown]
  - Vision blurred [Unknown]
  - Ocular hyperaemia [Unknown]
  - Off label use [Unknown]
